FAERS Safety Report 9639086 (Version 1)
Quarter: 2013Q4

REPORT INFORMATION
  Report Type: Spontaneous
  Country: IT (occurrence: IT)
  Receive Date: 20131022
  Receipt Date: 20131022
  Transmission Date: 20140711
  Serious: Yes (Other)
  Sender: FDA-Public Use
  Company Number: IT-ASTRAZENECA-2013SE76062

PATIENT
  Sex: Female

DRUGS (5)
  1. NEXIUM [Suspect]
     Indication: GASTROOESOPHAGEAL REFLUX DISEASE
     Route: 048
  2. NEXIUM [Suspect]
     Indication: GASTROOESOPHAGEAL REFLUX DISEASE
     Route: 048
  3. UNSPECIFIED STATIN [Concomitant]
     Indication: HYPERCHOLESTEROLAEMIA
  4. UNSPECIFIED BETA-BLOCKER [Concomitant]
     Indication: HYPERTENSION
  5. OTHER TYPES OF ANTISECRETORY [Concomitant]

REACTIONS (4)
  - Gastric polyps [Unknown]
  - Gastrooesophageal reflux disease [Unknown]
  - Therapy cessation [Unknown]
  - Off label use [Unknown]
